FAERS Safety Report 5075781-7 (Version None)
Quarter: 2006Q3

REPORT INFORMATION
  Report Type: 
  Country: None (occurrence: None)
  Receive Date: 20060807
  Receipt Date: 20060726
  Transmission Date: 20061208
  Serious: Yes (Other)
  Sender: FDA-Public Use
  Company Number: 2006092837

PATIENT
  Sex: Female

DRUGS (1)
  1. GLUCOTROL [Suspect]

REACTIONS (7)
  - HEADACHE [None]
  - LOCAL SWELLING [None]
  - NAUSEA [None]
  - PRURITUS GENERALISED [None]
  - RASH [None]
  - SWELLING [None]
  - URTICARIA [None]
